FAERS Safety Report 6781618-8 (Version None)
Quarter: 2010Q2

REPORT INFORMATION
  Report Type: 
  Country: None (occurrence: None)
  Receive Date: 20100617
  Receipt Date: 20100617
  Transmission Date: 20101027
  Serious: Yes (Disabling)
  Sender: FDA-Public Use
  Company Number: None

PATIENT
  Age: 82 Year
  Sex: Male
  Weight: 50 kg

DRUGS (3)
  1. FRAGMIN [Suspect]
  2. LAMOTIL [Concomitant]
  3. COUMADIN [Concomitant]

REACTIONS (1)
  - THROMBOCYTOPENIA [None]
